FAERS Safety Report 18120858 (Version 2)
Quarter: 2020Q3

REPORT INFORMATION
  Report Type: Spontaneous
  Country: JP (occurrence: JP)
  Receive Date: 20200806
  Receipt Date: 20200807
  Transmission Date: 20201103
  Serious: Yes (Death, Life-Threatening, Hospitalization, Other)
  Sender: FDA-Public Use
  Company Number: JP-PFIZER INC-2020296399

PATIENT
  Age: 40 Year
  Sex: Female

DRUGS (3)
  1. TAMOXIFEN [Concomitant]
     Active Substance: TAMOXIFEN
     Indication: BREAST CANCER RECURRENT
     Dosage: UNK
     Route: 048
     Dates: start: 202006, end: 202007
  2. IBRANCE [Suspect]
     Active Substance: PALBOCICLIB
     Indication: BREAST CANCER RECURRENT
     Dosage: 50 MG, DAILY
     Route: 048
     Dates: start: 202006, end: 202007
  3. LEUPRORELIN [Concomitant]
     Active Substance: LEUPROLIDE ACETATE
     Indication: BREAST CANCER RECURRENT
     Dosage: UNK
     Dates: start: 202006, end: 202007

REACTIONS (7)
  - Hepatic failure [Fatal]
  - Platelet count decreased [Unknown]
  - Infection [Fatal]
  - General physical health deterioration [Unknown]
  - Neoplasm progression [Fatal]
  - Anaemia [Unknown]
  - Disseminated intravascular coagulation [Fatal]

NARRATIVE: CASE EVENT DATE: 20200728
